FAERS Safety Report 6068889-0 (Version None)
Quarter: 2009Q1

REPORT INFORMATION
  Report Type: 
  Country: None (occurrence: None)
  Receive Date: 20090121
  Receipt Date: 20080313
  Transmission Date: 20090719
  Serious: Yes (Hospitalization, Other)
  Sender: FDA-Public Use
  Company Number: HQWYE040225OCT04

PATIENT
  Age: 63 Year
  Sex: Female
  Weight: 83.99 kg

DRUGS (3)
  1. PREMPRO [Suspect]
  2. PREMARIN [Suspect]
  3. PROVERA [Suspect]

REACTIONS (7)
  - ANXIETY [None]
  - ASTHENIA [None]
  - BREAST CANCER [None]
  - INSOMNIA [None]
  - MYALGIA [None]
  - STRESS [None]
  - SWELLING [None]
